FAERS Safety Report 13332255 (Version 2)
Quarter: 2019Q4

REPORT INFORMATION
  Report Type: Report from Study
  Country: US (occurrence: US)
  Receive Date: 20170314
  Receipt Date: 20191017
  Transmission Date: 20200122
  Serious: Yes (Life-Threatening, Hospitalization, Other)
  Sender: FDA-Public Use
  Company Number: US-SHIRE-US201704400

PATIENT
  Age: 53 Year
  Sex: Female

DRUGS (1)
  1. NATPARA (PARATHYROID HORMONE) [Suspect]
     Active Substance: PARATHYROID HORMONE
     Indication: POST PROCEDURAL HYPOPARATHYROIDISM
     Dosage: 100 MICROGRAM, 1X/DAY:QD
     Route: 058
     Dates: start: 20160618

REACTIONS (6)
  - Product dose omission [Recovered/Resolved]
  - Recalled product [Unknown]
  - Palpitations [Unknown]
  - Locked-in syndrome [Unknown]
  - Hypocalcaemia [Recovering/Resolving]
  - Muscle twitching [Unknown]

NARRATIVE: CASE EVENT DATE: 20170225
